FAERS Safety Report 4363895-6 (Version None)
Quarter: 2004Q2

REPORT INFORMATION
  Report Type: 
  Country: None (occurrence: None)
  Receive Date: 20040512
  Receipt Date: 20040428
  Transmission Date: 20050107
  Serious: Yes (Other)
  Sender: FDA-Public Use
  Company Number: 2004-115605-NL

PATIENT
  Age: 86 Year
  Sex: Male

DRUGS (10)
  1. TICE BCG ^ORGANON^ [Suspect]
     Indication: BLADDER CANCER
     Dosage: CFU INTRAVESICAL, 8 INSTILLATIONS
     Dates: start: 20030701
  2. TICE BCG ^ORGANON^ [Suspect]
     Indication: BLADDER CANCER
     Dosage: CFU INTRAVESICAL, 4 INSTILLATIONS
     Dates: start: 20040303, end: 20040324
  3. INTRONA [Suspect]
     Indication: BLADDER CANCER
     Dosage: 50 MIU WEEKLY INTRAVESICAL
     Route: 043
     Dates: start: 20040303, end: 20040324
  4. ACTOS [Concomitant]
  5. MOBIC [Concomitant]
  6. LIPITOR [Concomitant]
  7. ZYRTEC [Concomitant]
  8. CAPTOPRIL [Concomitant]
  9. NORVASC [Concomitant]
  10. PLENDIL [Concomitant]

REACTIONS (8)
  - DRUG EFFECT DECREASED [None]
  - EPIDIDYMAL CYST [None]
  - HYDROCELE [None]
  - INFLUENZA LIKE ILLNESS [None]
  - MALAISE [None]
  - TESTICULAR DISORDER [None]
  - TESTICULAR PAIN [None]
  - TESTICULAR SWELLING [None]
